FAERS Safety Report 6073928-7 (Version None)
Quarter: 2009Q1

REPORT INFORMATION
  Report Type: 
  Country: None (occurrence: None)
  Receive Date: 20090211
  Receipt Date: 20090203
  Transmission Date: 20090719
  Serious: Yes (Hospitalization, Other)
  Sender: FDA-Public Use
  Company Number: CN-ABBOTT-08P-035-0491021-00

PATIENT
  Age: 37 Year
  Sex: Female
  Weight: 48.5 kg

DRUGS (3)
  1. KALETRA [Suspect]
     Indication: ACQUIRED IMMUNODEFICIENCY SYNDROME
     Dosage: 800/200MG DAILY, 400/100MG BID
     Route: 048
     Dates: start: 20080726
  2. TENOFOVIR [Concomitant]
     Indication: ACQUIRED IMMUNODEFICIENCY SYNDROME
     Route: 048
     Dates: start: 20080726
  3. LAMIVUDINE [Concomitant]
     Indication: ACQUIRED IMMUNODEFICIENCY SYNDROME
     Route: 048
     Dates: start: 20080401

REACTIONS (5)
  - CHROMATURIA [None]
  - COUGH [None]
  - HEPATIC CIRRHOSIS [None]
  - PYREXIA [None]
  - UPPER GASTROINTESTINAL HAEMORRHAGE [None]
